FAERS Safety Report 13686941 (Version 1)
Quarter: 2017Q2

REPORT INFORMATION
  Report Type: Report from Study
  Country: IE (occurrence: IE)
  Receive Date: 20170623
  Receipt Date: 20170623
  Transmission Date: 20170830
  Serious: Yes (Other)
  Sender: FDA-Public Use
  Company Number: IE-AMGEN-IRLSL2017093017

PATIENT
  Age: 63 Year
  Sex: Male

DRUGS (7)
  1. CALCICHEW [Concomitant]
     Active Substance: CALCIUM CARBONATE
     Dosage: 500 MG, QD
     Route: 050
  2. DIABREZIDE [Concomitant]
     Active Substance: GLICLAZIDE
     Dosage: 160 MG, QD
     Route: 050
  3. FUROSEMIDE. [Concomitant]
     Active Substance: FUROSEMIDE
     Dosage: 40 MG, QD
     Route: 050
  4. SEPTRIN [Concomitant]
     Active Substance: SULFAMETHOXAZOLE\TRIMETHOPRIM
     Dosage: 480 MG, UNK
     Route: 050
  5. ARANESP [Suspect]
     Active Substance: DARBEPOETIN ALFA
     Indication: CHRONIC KIDNEY DISEASE
     Dosage: 40 MUG, Q2WK
     Route: 058
     Dates: start: 20161201
  6. NUPRIN [Concomitant]
     Active Substance: IBUPROFEN
     Dosage: 75 MG, QD
     Route: 050
  7. LERCANIDIPINE [Concomitant]
     Active Substance: LERCANIDIPINE
     Dosage: 10 MG, QD
     Route: 050

REACTIONS (1)
  - Haemoglobin abnormal [Unknown]

NARRATIVE: CASE EVENT DATE: 20170403
